FAERS Safety Report 8409827-2 (Version None)
Quarter: 2012Q2

REPORT INFORMATION
  Report Type: 
  Country: None (occurrence: None)
  Receive Date: 20120605
  Receipt Date: 20120531
  Transmission Date: 20120825
  Serious: No
  Sender: FDA-Public Use
  Company Number: US-PFIZER INC-2012132679

PATIENT
  Sex: Female
  Weight: 96.145 kg

DRUGS (11)
  1. LIPITOR [Concomitant]
     Indication: BLOOD CHOLESTEROL INCREASED
     Dosage: 40 MG, DAILY
  2. LEXAPRO [Concomitant]
     Indication: ANXIETY
  3. TRAZODONE [Concomitant]
     Indication: SLEEP DISORDER
     Dosage: 5 MG, AS NEEDED
  4. ZANTAC [Concomitant]
     Indication: DYSPEPSIA
     Dosage: 150 MG, AS NEEDED
  5. INSULIN [Concomitant]
     Indication: DIABETES MELLITUS
     Dosage: UNK
  6. SEROQUEL [Concomitant]
     Indication: DEPRESSION
     Dosage: 200 MG, DAILY
  7. LISINOPRIL [Concomitant]
     Dosage: 20 MG, DAILY
  8. SUTENT [Suspect]
     Indication: HEPATIC NEOPLASM MALIGNANT
  9. SUTENT [Suspect]
     Indication: PANCREATIC CARCINOMA
     Dosage: 12.5 MG, 3X/DAY
     Dates: start: 20120428
  10. LEXAPRO [Concomitant]
     Indication: DEPRESSION
     Dosage: 40 MG, DAILY
  11. SEROQUEL [Concomitant]
     Indication: ANXIETY

REACTIONS (2)
  - GLOSSODYNIA [None]
  - ORAL PAIN [None]
